FAERS Safety Report 9286067 (Version 1)
Quarter: 2013Q2

REPORT INFORMATION
  Report Type: Spontaneous
  Country: FR (occurrence: FR)
  Receive Date: 20130513
  Receipt Date: 20130513
  Transmission Date: 20140414
  Serious: Yes (Other)
  Sender: FDA-Public Use
  Company Number: FR-SANOFI-AVENTIS-2013SA045164

PATIENT
  Age: 65 Year
  Sex: Female
  Weight: 63 kg

DRUGS (5)
  1. LOVENOX [Suspect]
     Indication: THROMBOSIS PROPHYLAXIS
     Dosage: DOSE: 4000 IU/L
     Route: 058
     Dates: start: 20130330, end: 20130406
  2. ORGARAN [Suspect]
     Indication: THROMBOSIS PROPHYLAXIS
     Route: 058
     Dates: start: 20130406
  3. PARACETAMOL [Concomitant]
     Route: 048
     Dates: start: 20130326
  4. TOPALGIC [Concomitant]
     Route: 048
     Dates: start: 20130326
  5. INSULIN [Concomitant]
     Route: 048
     Dates: start: 20130326

REACTIONS (3)
  - Haematuria [Not Recovered/Not Resolved]
  - Adrenal haematoma [Not Recovered/Not Resolved]
  - Haematoma [Not Recovered/Not Resolved]
